FAERS Safety Report 20744741 (Version 1)
Quarter: 2022Q2

REPORT INFORMATION
  Report Type: Spontaneous
  Country: US (occurrence: US)
  Receive Date: 20220425
  Receipt Date: 20220425
  Transmission Date: 20220721
  Serious: Yes (Other)
  Sender: FDA-Public Use
  Company Number: US-AMGEN-USASP2022068711

PATIENT
  Age: 62 Year
  Sex: Male

DRUGS (9)
  1. FILGRASTIM [Suspect]
     Active Substance: FILGRASTIM
     Indication: Leukopenia
     Dosage: UNK
     Route: 065
  2. FILGRASTIM [Suspect]
     Active Substance: FILGRASTIM
     Indication: Product used for unknown indication
  3. BASILIXIMAB [Concomitant]
     Active Substance: BASILIXIMAB
     Dosage: UNK
  4. MYCOPHENOLATE MOFETIL [Concomitant]
     Active Substance: MYCOPHENOLATE MOFETIL
     Dosage: UNK
  5. VALGANCICLOVIR [Concomitant]
     Active Substance: VALGANCICLOVIR
     Dosage: UNK
  6. SULFAMETHOXAZOLE\TRIMETHOPRIM [Concomitant]
     Active Substance: SULFAMETHOXAZOLE\TRIMETHOPRIM
     Dosage: UNK
  7. LETERMOVIR [Concomitant]
     Active Substance: LETERMOVIR
     Dosage: UNK
  8. ACYCLOVIR [Concomitant]
     Active Substance: ACYCLOVIR
     Dosage: UNK
  9. ATOVAQUONE [Concomitant]
     Active Substance: ATOVAQUONE
     Dosage: UNK

REACTIONS (3)
  - Bone marrow failure [Unknown]
  - Parvovirus B19 test positive [Unknown]
  - Off label use [Unknown]
